FAERS Safety Report 7591508-9 (Version None)
Quarter: 2011Q2

REPORT INFORMATION
  Report Type: 
  Country: None (occurrence: None)
  Receive Date: 20110627
  Receipt Date: 20110620
  Transmission Date: 20111010
  Serious: Yes (Hospitalization)
  Sender: FDA-Public Use
  Company Number: 956395

PATIENT
  Age: 58 Year
  Sex: Female

DRUGS (1)
  1. METHOTREXATE [Suspect]
     Indication: NON-HODGKIN'S LYMPHOMA
     Dosage: INTRAVEOUS
     Route: 042

REACTIONS (6)
  - LEUKOENCEPHALOPATHY [None]
  - STATUS EPILEPTICUS [None]
  - DISEASE RECURRENCE [None]
  - APHASIA [None]
  - PYREXIA [None]
  - CONFUSIONAL STATE [None]
